FAERS Safety Report 4791333-8 (Version None)
Quarter: 2005Q4

REPORT INFORMATION
  Report Type: 
  Country: None (occurrence: None)
  Receive Date: 20051007
  Receipt Date: 20050928
  Transmission Date: 20060501
  Serious: Yes (Other)
  Sender: FDA-Public Use
  Company Number: HU-JNJFOC-20050705290

PATIENT
  Sex: Female

DRUGS (9)
  1. INFLIXIMAB [Suspect]
     Route: 050
  2. INFLIXIMAB [Suspect]
     Dosage: 6TH INFUSION
     Route: 050
  3. INFLIXIMAB [Suspect]
     Route: 050
  4. INFLIXIMAB [Suspect]
     Route: 050
  5. INFLIXIMAB [Suspect]
     Route: 050
  6. INFLIXIMAB [Suspect]
     Route: 050
  7. INFLIXIMAB [Suspect]
     Indication: DRUG USE FOR UNKNOWN INDICATION
     Route: 050
  8. NOVYNETTE [Concomitant]
     Route: 048
  9. NOVYNETTE [Concomitant]
     Indication: CONTRACEPTION
     Route: 048

REACTIONS (2)
  - ANTEPARTUM HAEMORRHAGE [None]
  - DRUG EXPOSURE DURING PREGNANCY [None]
